FAERS Safety Report 8274031-8 (Version None)
Quarter: 2012Q2

REPORT INFORMATION
  Report Type: 
  Country: None (occurrence: None)
  Receive Date: 20120409
  Receipt Date: 20120327
  Transmission Date: 20120825
  Serious: Yes (Other)
  Sender: FDA-Public Use
  Company Number: JPI-P-020605

PATIENT
  Age: 43 Year
  Sex: Male

DRUGS (1)
  1. XYREM [Suspect]
     Indication: NARCOLEPSY
     Dosage: 4.5 GM (2.25 GM 2 IN 1 D), ORAL
     Route: 048
     Dates: start: 20100827

REACTIONS (2)
  - PAIN [None]
  - SURGERY [None]
